FAERS Safety Report 24689987 (Version 1)
Quarter: 2024Q4

REPORT INFORMATION
  Report Type: Spontaneous
  Country: IE (occurrence: IE)
  Receive Date: 20241203
  Receipt Date: 20241203
  Transmission Date: 20250115
  Serious: Yes (Other)
  Sender: ACCORD
  Company Number: None

PATIENT
  Age: 33 Year
  Sex: Female
  Weight: 60.5 kg

DRUGS (1)
  1. CISPLATIN [Suspect]
     Active Substance: CISPLATIN
     Indication: Cervix carcinoma
     Dosage: STRENGTH: 1MG/ML
     Dates: start: 20240422, end: 20240422

REACTIONS (3)
  - Rash [Recovered/Resolved]
  - Face oedema [Recovered/Resolved]
  - Body temperature increased [Recovered/Resolved]
